FAERS Safety Report 5470897-5 (Version None)
Quarter: 2007Q3

REPORT INFORMATION
  Report Type: 
  Country: None (occurrence: None)
  Receive Date: 20070928
  Receipt Date: 20070926
  Transmission Date: 20080115
  Serious: Yes (Death, Other)
  Sender: FDA-Public Use
  Company Number: US-BRISTOL-MYERS SQUIBB COMPANY-13859798

PATIENT
  Age: 60 Year
  Sex: Female

DRUGS (4)
  1. CEFEPIME [Suspect]
     Indication: FEBRILE NEUTROPENIA
  2. CYTARABINE [Suspect]
     Indication: MYELODYSPLASTIC SYNDROME
  3. VORICONAZOLE [Suspect]
     Indication: ASPERGILLOSIS
  4. CASPOFUNGIN ACETATE [Suspect]
     Indication: ASPERGILLOSIS

REACTIONS (5)
  - BRONCHOPULMONARY ASPERGILLOSIS [None]
  - DRUG RESISTANCE [None]
  - EPILEPSY [None]
  - PNEUMONIA [None]
  - RENAL FAILURE [None]
